FAERS Safety Report 19425353 (Version 1)
Quarter: 2021Q2

REPORT INFORMATION
  Report Type: Spontaneous
  Country: US (occurrence: US)
  Receive Date: 20210617
  Receipt Date: 20210617
  Transmission Date: 20210717
  Serious: No
  Sender: FDA-Public Use
  Company Number: US-ROCHE-2573498

PATIENT
  Age: 65 Year
  Sex: Male

DRUGS (4)
  1. CHLOROQUINE. [Concomitant]
     Active Substance: CHLOROQUINE
     Indication: COVID-19
  2. LOPINAVIR [Concomitant]
     Active Substance: LOPINAVIR
     Indication: COVID-19
  3. ACTEMRA [Suspect]
     Active Substance: TOCILIZUMAB
     Indication: COVID-19
     Dosage: 4MG/KG
     Route: 042
     Dates: start: 20200322, end: 20200322
  4. RITONAVIR. [Concomitant]
     Active Substance: RITONAVIR
     Indication: COVID-19

REACTIONS (3)
  - Off label use [Unknown]
  - Product use in unapproved indication [Unknown]
  - No adverse event [Unknown]

NARRATIVE: CASE EVENT DATE: 20200322
